FAERS Safety Report 5928769-5 (Version None)
Quarter: 2008Q4

REPORT INFORMATION
  Report Type: 
  Country: None (occurrence: None)
  Receive Date: 20081021
  Receipt Date: 20081009
  Transmission Date: 20090506
  Serious: Yes (Other)
  Sender: FDA-Public Use
  Company Number: 2008SP020585

PATIENT
  Sex: Female
  Weight: 67 kg

DRUGS (6)
  1. DESLORATADINE [Suspect]
     Indication: DRUG USE FOR UNKNOWN INDICATION
     Dosage: 5 MG; PO
     Route: 048
  2. OTRIVIN [Suspect]
     Indication: DRUG USE FOR UNKNOWN INDICATION
  3. XYZAL [Suspect]
     Indication: DRUG USE FOR UNKNOWN INDICATION
  4. FLUPENTHIXOL [Concomitant]
  5. PREDNISOLONE [Concomitant]
  6. ACTH [Concomitant]

REACTIONS (4)
  - NASAL OEDEMA [None]
  - PHARYNGEAL OEDEMA [None]
  - RASH [None]
  - SWOLLEN TONGUE [None]
